FAERS Safety Report 19633936 (Version 2)
Quarter: 2021Q4

REPORT INFORMATION
  Report Type: Spontaneous
  Country: US (occurrence: US)
  Receive Date: 20210730
  Receipt Date: 20211011
  Transmission Date: 20220303
  Serious: Yes (Life-Threatening, Hospitalization)
  Sender: FDA-Public Use
  Company Number: US-DRREDDYS-SPO/USA/21/0138277

PATIENT
  Age: 22 Year
  Sex: Female

DRUGS (1)
  1. LAMOTRIGINE [Suspect]
     Active Substance: LAMOTRIGINE
     Indication: Bipolar disorder

REACTIONS (4)
  - Photosensitivity reaction [Recovering/Resolving]
  - Dysphagia [Unknown]
  - Toxic epidermal necrolysis [Recovering/Resolving]
  - Dysuria [Unknown]
